FAERS Safety Report 7911609-2 (Version None)
Quarter: 2011Q4

REPORT INFORMATION
  Report Type: 
  Country: None (occurrence: None)
  Receive Date: 20111114
  Receipt Date: 20111107
  Transmission Date: 20120403
  Serious: Yes (Other)
  Sender: FDA-Public Use
  Company Number: JP-JNJFOC-20111002610

PATIENT
  Age: 56 Year
  Sex: Female

DRUGS (7)
  1. LOXONIN [Concomitant]
     Route: 065
  2. PREDNISOLONE [Concomitant]
     Route: 065
  3. MYONAL [Concomitant]
     Route: 048
  4. TRAMADOL HYDROCHLORIDE/ACETAMINOPHEN [Suspect]
     Indication: PAIN
     Route: 048
     Dates: start: 20110917, end: 20110926
  5. LYRICA [Concomitant]
     Route: 048
  6. PRIMPERAN TAB [Concomitant]
     Indication: PROPHYLAXIS
     Route: 065
     Dates: start: 20110917, end: 20110926
  7. PAXIL [Concomitant]
     Route: 048

REACTIONS (1)
  - DRUG ERUPTION [None]
